FAERS Safety Report 9717451 (Version 1)
Quarter: 2013Q4

REPORT INFORMATION
  Report Type: Spontaneous
  Country: US (occurrence: US)
  Receive Date: 20131127
  Receipt Date: 20131127
  Transmission Date: 20140711
  Serious: No
  Sender: FDA-Public Use
  Company Number: US-GILEAD-2009-0019721

PATIENT
  Sex: Female
  Weight: 53.52 kg

DRUGS (18)
  1. LETAIRIS [Suspect]
     Indication: PULMONARY ARTERIAL HYPERTENSION
     Route: 048
     Dates: start: 20081023
  2. BISOPROLOL FUMARATE [Concomitant]
  3. OXYGEN [Concomitant]
  4. XOPENEX [Concomitant]
  5. NASONEX [Concomitant]
  6. SYNTHROID [Concomitant]
  7. TYLENOL [Concomitant]
  8. LYRICA [Concomitant]
  9. EFFEXOR [Concomitant]
  10. FLEXERIL [Concomitant]
  11. LUNESTA [Concomitant]
  12. METHADONE [Concomitant]
  13. XANAX [Concomitant]
  14. COLACE [Concomitant]
  15. A-Z MULTIVITAMIN [Concomitant]
  16. FISH OIL [Concomitant]
  17. PV VITAMIN D [Concomitant]
  18. BL VITAMIN B-12 [Concomitant]

REACTIONS (3)
  - Eyelid oedema [Unknown]
  - Throat irritation [Unknown]
  - Dyspnoea [Unknown]
